FAERS Safety Report 5913282-1 (Version None)
Quarter: 2008Q4

REPORT INFORMATION
  Report Type: 
  Country: None (occurrence: None)
  Receive Date: 20081008
  Receipt Date: 20081008
  Transmission Date: 20090506
  Serious: Yes (Hospitalization)
  Sender: FDA-Public Use
  Company Number: None

PATIENT
  Age: 49 Year
  Sex: Female
  Weight: 65.318 kg

DRUGS (1)
  1. NASONEX [Suspect]
     Indication: RHINITIS ALLERGIC
     Dates: start: 20051102, end: 20081002

REACTIONS (6)
  - ANXIETY [None]
  - DEPRESSION [None]
  - HYPERVENTILATION [None]
  - INSOMNIA [None]
  - TACHYCARDIA [None]
  - WEIGHT INCREASED [None]
